FAERS Safety Report 11432358 (Version 1)
Quarter: 2015Q3

REPORT INFORMATION
  Report Type: Report from Study
  Country: CN (occurrence: CN)
  Receive Date: 20150828
  Receipt Date: 20150828
  Transmission Date: 20151125
  Serious: Yes (Hospitalization)
  Sender: FDA-Public Use
  Company Number: CN-OTSUKA-2015_008103

PATIENT
  Age: 64 Year
  Sex: Male

DRUGS (6)
  1. ATORVASTATIN [Concomitant]
     Active Substance: ATORVASTATIN
     Indication: HYPERCHOLESTEROLAEMIA
     Dosage: 20 MG, QD (EVERY NIGHT)
     Route: 048
     Dates: start: 20141125
  2. BLINDED *PLACEBO [Suspect]
     Active Substance: UNSPECIFIED INGREDIENT
     Indication: HYPERCHOLESTEROLAEMIA
     Dosage: 100 MG, BID
     Route: 048
     Dates: start: 20141125
  3. BLINDED CILOSTAZOL [Suspect]
     Active Substance: CILOSTAZOL
     Indication: HYPERCHOLESTEROLAEMIA
     Dosage: 100 MG, BID
     Route: 048
     Dates: start: 20141125
  4. AMLODIPINE [Concomitant]
     Active Substance: AMLODIPINE BESYLATE
     Indication: HYPERTENSION
     Dosage: 5 MG, QD
     Route: 048
     Dates: start: 1995
  5. PROBUCOL [Suspect]
     Active Substance: PROBUCOL
     Indication: HYPERCHOLESTEROLAEMIA
     Dosage: 500 MG, BID
     Route: 048
     Dates: start: 20141125
  6. IRBESARTAN. [Concomitant]
     Active Substance: IRBESARTAN
     Indication: HYPERTENSION
     Dosage: 150 MG, QD
     Route: 048
     Dates: start: 1995

REACTIONS (1)
  - Osteoarthritis [Recovering/Resolving]

NARRATIVE: CASE EVENT DATE: 20150728
